FAERS Safety Report 21590296 (Version 3)
Quarter: 2023Q1

REPORT INFORMATION
  Report Type: Report from Study
  Country: EG (occurrence: EG)
  Receive Date: 20221114
  Receipt Date: 20230301
  Transmission Date: 20230418
  Serious: Yes (Other)
  Sender: FDA-Public Use
  Company Number: EG-002147023-NVSC2022EG254462

PATIENT
  Sex: Male

DRUGS (8)
  1. GILENYA [Suspect]
     Active Substance: FINGOLIMOD HYDROCHLORIDE
     Indication: Multiple sclerosis
     Dosage: 1 DOSAGE FORM, QD
     Route: 048
     Dates: start: 2017
  2. GILENYA [Suspect]
     Active Substance: FINGOLIMOD HYDROCHLORIDE
     Dosage: 1 DOSAGE FORM, QOD
     Route: 048
     Dates: start: 202210, end: 20221106
  3. GILENYA [Suspect]
     Active Substance: FINGOLIMOD HYDROCHLORIDE
     Dosage: 1 DOSAGE FORM, QD (4 DAYS AGO)
     Route: 048
     Dates: end: 20230128
  4. BENFOTIAMINE\CYANOCOBALAMIN\PYRIDOXINE HYDROCHLORIDE [Concomitant]
     Active Substance: BENFOTIAMINE\CYANOCOBALAMIN\PYRIDOXINE HYDROCHLORIDE
     Indication: Supplementation therapy
     Dosage: 10 MG, QD, 2 TO 3 YEARS AGO
     Route: 048
     Dates: start: 2020
  5. CEREBROLYSIN [Concomitant]
     Active Substance: CEREBROLYSIN
     Indication: Neuralgia
     Dosage: UNK, QW (IN INTERMITTENT MANNER)
     Route: 065
     Dates: start: 2020
  6. CEREBROLYSIN [Concomitant]
     Active Substance: CEREBROLYSIN
     Indication: Supplementation therapy
  7. FOLIC ACID [Concomitant]
     Active Substance: FOLIC ACID
     Indication: Supplementation therapy
     Dosage: UNK, TID (TILL A WEEK AGO)
     Route: 065
     Dates: start: 202210
  8. OMEGA 3 [Concomitant]
     Active Substance: CAPSAICIN
     Indication: Product used for unknown indication
     Dosage: UNK, QD,((IN INTERMITTENT MANNER)
     Route: 048
     Dates: start: 2020

REACTIONS (14)
  - Hepatic enzyme increased [Recovered/Resolved]
  - Fall [Not Recovered/Not Resolved]
  - Tendon rupture [Not Recovered/Not Resolved]
  - Bone pain [Unknown]
  - Joint dislocation [Recovered/Resolved]
  - Muscle injury [Recovered/Resolved]
  - Movement disorder [Not Recovered/Not Resolved]
  - Spinal deformity [Recovering/Resolving]
  - Chest pain [Not Recovered/Not Resolved]
  - Multiple sclerosis [Recovering/Resolving]
  - Fatigue [Recovering/Resolving]
  - Limb discomfort [Not Recovered/Not Resolved]
  - Muscular weakness [Not Recovered/Not Resolved]
  - Drug ineffective [Unknown]

NARRATIVE: CASE EVENT DATE: 20180101
